FAERS Safety Report 9287034 (Version 2)
Quarter: 2013Q4

REPORT INFORMATION
  Report Type: Spontaneous
  Country: US (occurrence: US)
  Receive Date: 20130513
  Receipt Date: 20131014
  Transmission Date: 20140711
  Serious: Yes (Hospitalization)
  Sender: FDA-Public Use
  Company Number: US-B.I. PHARMACEUTICALS,INC./RIDGEFIELD-2013-BI-13179BP

PATIENT
  Age: 88 Year
  Sex: Female
  Weight: 78.02 kg

DRUGS (16)
  1. PRADAXA [Suspect]
     Indication: ANTICOAGULANT THERAPY
     Dosage: 300 MG
     Dates: start: 20111222, end: 20120110
  2. PRADAXA [Suspect]
     Indication: ATRIAL FIBRILLATION
  3. LANTUS [Concomitant]
     Indication: DIABETES MELLITUS
  4. PEPCID [Concomitant]
     Indication: GASTRIC DISORDER
     Dosage: 20 MG
  5. SPIRIVA [Concomitant]
     Indication: DYSPNOEA
     Dosage: 18 MCG
  6. STARLIX [Concomitant]
     Indication: DIABETES MELLITUS
     Dosage: 360 MG
  7. FOLIC ACID [Concomitant]
     Indication: PROPHYLAXIS AGAINST GASTROINTESTINAL ULCER
     Dosage: 1 MG
  8. SINEMET [Concomitant]
     Indication: PARKINSON^S DISEASE
  9. DIGOXIN [Concomitant]
     Indication: CARDIAC DISORDER
  10. PREDNISONE [Concomitant]
     Indication: DYSPNOEA
     Dosage: 5 MG
  11. FERREX [Concomitant]
     Indication: SUPPLEMENTATION THERAPY
     Dosage: 150 MG
  12. LIPITOR [Concomitant]
     Indication: BLOOD CHOLESTEROL ABNORMAL
     Dosage: 20 MG
  13. TRAMADOL [Concomitant]
     Indication: ARTHRITIS
     Dosage: 50 MG
  14. LASIX [Concomitant]
     Indication: FLUID RETENTION
     Dosage: 20 MG
  15. BYSTOLIC [Concomitant]
     Indication: BLOOD PRESSURE ABNORMAL
     Dosage: 5 MG
  16. ADVAIR [Concomitant]
     Indication: DYSPNOEA

REACTIONS (2)
  - Gastrointestinal haemorrhage [Not Recovered/Not Resolved]
  - Anaemia [Not Recovered/Not Resolved]
